FAERS Safety Report 5195827-5 (Version None)
Quarter: 2006Q4

REPORT INFORMATION
  Report Type: 
  Country: None (occurrence: None)
  Receive Date: 20061227
  Receipt Date: 20061215
  Transmission Date: 20070319
  Serious: Yes (Hospitalization)
  Sender: FDA-Public Use
  Company Number: US019013

PATIENT
  Age: 9 Month
  Sex: Male

DRUGS (3)
  1. GABITRIL [Suspect]
     Indication: EPILEPSY
     Dates: end: 20060101
  2. GABITRIL [Suspect]
     Indication: EPILEPSY
     Dates: start: 20061101
  3. ZONEGRAN [Concomitant]

REACTIONS (4)
  - BLOOD CREATINE PHOSPHOKINASE INCREASED [None]
  - DRUG WITHDRAWAL SYNDROME [None]
  - LIVER FUNCTION TEST ABNORMAL [None]
  - MUSCLE RIGIDITY [None]
